FAERS Safety Report 14415808 (Version 2)
Quarter: 2018Q1

REPORT INFORMATION
  Report Type: Spontaneous
  Country: US (occurrence: US)
  Receive Date: 20180122
  Receipt Date: 20180326
  Transmission Date: 20180509
  Serious: Yes (Life-Threatening, Hospitalization, Other)
  Sender: FDA-Public Use
  Company Number: US-BRISTOL-MYERS SQUIBB COMPANY-BMS-2018-004493

PATIENT
  Sex: Male

DRUGS (1)
  1. KENALOG-10 [Suspect]
     Active Substance: TRIAMCINOLONE ACETONIDE
     Indication: MYOSITIS
     Dosage: UNK
     Route: 050

REACTIONS (5)
  - Product use in unapproved indication [Unknown]
  - Sepsis [Recovering/Resolving]
  - Wound [Unknown]
  - Renal failure [Recovering/Resolving]
  - Soft tissue injury [Unknown]
